FAERS Safety Report 16934972 (Version 1)
Quarter: 2019Q4

REPORT INFORMATION
  Report Type: Spontaneous
  Country: FR (occurrence: FR)
  Receive Date: 20191018
  Receipt Date: 20191018
  Transmission Date: 20200122
  Serious: Yes (Hospitalization, Other)
  Sender: FDA-Public Use
  Company Number: FR-BAYER-2019-105045

PATIENT
  Age: 30 Year
  Sex: Female

DRUGS (3)
  1. MIRENA [Suspect]
     Active Substance: LEVONORGESTREL
     Dosage: 20 MCG/24HR, CONT
     Route: 015
     Dates: start: 20051229, end: 20100829
  2. PROVAMES [Concomitant]
     Active Substance: ESTRADIOL
     Indication: CONTRACEPTION
  3. ANDROCUR [Suspect]
     Active Substance: CYPROTERONE ACETATE
     Indication: CONTRACEPTION
     Dosage: UNK
     Route: 048
     Dates: start: 20101029

REACTIONS (15)
  - Off label use [None]
  - Depression [None]
  - Anxiety [None]
  - Fungal infection [None]
  - Eye pain [None]
  - Internal fixation of fracture [None]
  - Headache [None]
  - Product use in unapproved indication [None]
  - Suicide threat [None]
  - Paraesthesia [None]
  - Asthenia [None]
  - Meningioma [None]
  - Hair growth abnormal [None]
  - Fatigue [None]
  - Photophobia [None]

NARRATIVE: CASE EVENT DATE: 20111018
